FAERS Safety Report 5232175-9 (Version None)
Quarter: 2007Q1

REPORT INFORMATION
  Report Type: 
  Country: None (occurrence: None)
  Receive Date: 20070205
  Receipt Date: 20070122
  Transmission Date: 20070707
  Serious: Yes (Death, Life-Threatening, Hospitalization, Disabling)
  Sender: FDA-Public Use
  Company Number: 231325

PATIENT
  Age: 59 Year
  Sex: Female
  Weight: 99.7 kg

DRUGS (11)
  1. BEVACIZUMAB (BEVACIZUMAB) PWDR + SOLVENT, INFUSION SOLN, 100MG [Suspect]
     Indication: GLIOBLASTOMA
     Dosage: 997 MG, Q2W, INTRAVENOUS
     Route: 042
     Dates: start: 20061005
  2. IRINOTECAN HCL [Suspect]
     Indication: GLIOBLASTOMA
     Dosage: 271 MG, Q2W, INTRAVENOUS
     Route: 042
     Dates: start: 20061005
  3. CEFTAZIDIME [Concomitant]
  4. NEUPOGEN [Concomitant]
  5. DEXAMETHASONE TAB [Concomitant]
  6. OXYGEN (OXYGEN) [Concomitant]
  7. RANITIDINE [Concomitant]
  8. FUROSEMIDE [Concomitant]
  9. OCTREOTIDE ACETATE (OCTREOTIDE ACETATE) [Concomitant]
  10. MORPHINE [Concomitant]
  11. NACL 0.9% + 20 MEQ KCL (POTASSIUM CHLORIDE, SODIUM CHLORIDE) [Concomitant]

REACTIONS (10)
  - CAECITIS [None]
  - CEREBRAL HAEMORRHAGE [None]
  - CHEST PAIN [None]
  - DEHYDRATION [None]
  - DISEASE PROGRESSION [None]
  - MENTAL STATUS CHANGES [None]
  - NEUTROPENIA [None]
  - RED BLOOD CELL COUNT DECREASED [None]
  - THROMBOCYTOPENIA [None]
  - WHITE BLOOD CELL COUNT DECREASED [None]
